FAERS Safety Report 24921685 (Version 1)
Quarter: 2025Q1

REPORT INFORMATION
  Report Type: Spontaneous
  Country: US (occurrence: US)
  Receive Date: 20250204
  Receipt Date: 20250204
  Transmission Date: 20250408
  Serious: Yes (Other)
  Sender: MYLAN
  Company Number: US-MYLANLABS-2025M1007515

PATIENT
  Age: 58 Year
  Sex: Female

DRUGS (3)
  1. PREDNISOLONE [Suspect]
     Active Substance: PREDNISOLONE
     Indication: Cystoid macular oedema
     Dosage: UNK, TID
     Route: 061
  2. ACETAZOLAMIDE [Suspect]
     Active Substance: ACETAZOLAMIDE
     Indication: Cystoid macular oedema
     Dosage: 250 MILLIGRAM, BID
     Route: 048
  3. BRINZOLAMIDE [Suspect]
     Active Substance: BRINZOLAMIDE
     Indication: Cystoid macular oedema
     Dosage: UNK, TID, THREE TIMES DAILY IN THE RIGHT EYE, TID
     Route: 061

REACTIONS (2)
  - Therapy non-responder [Unknown]
  - Off label use [Unknown]
